FAERS Safety Report 9141075 (Version 1)
Quarter: 2013Q1

REPORT INFORMATION
  Report Type: Spontaneous
  Country: FR (occurrence: FR)
  Receive Date: 20130305
  Receipt Date: 20130305
  Transmission Date: 20140127
  Serious: Yes (Other)
  Sender: FDA-Public Use
  Company Number: FR-PFIZER INC-2013072828

PATIENT
  Age: 33 Year
  Sex: Male

DRUGS (2)
  1. ADVIL ENFANTS ET NOURRISSONS [Suspect]
     Dosage: 1 DF, UNK
     Route: 048
     Dates: start: 20121218
  2. ASPIRINE [Suspect]
     Dosage: UNK
     Route: 048
     Dates: start: 20121218

REACTIONS (1)
  - Laryngeal oedema [Recovered/Resolved]
